FAERS Safety Report 8770266 (Version 1)
Quarter: 2012Q4

REPORT INFORMATION
  Report Type: 
  Country: US (occurrence: US)
  Receive Date: 20120906
  Receipt Date: 20120906
  Transmission Date: 20130627
  Serious: No
  Sender: FDA-Public Use
  Company Number: US-GLAXOSMITHKLINE-A0982171A

PATIENT
  Sex: Male

DRUGS (2)
  1. LAMICTAL [Suspect]
     Indication: AFFECTIVE DISORDER
     Dosage: 50MG Per day
     Route: 048
     Dates: start: 201206
  2. WELLBUTRIN XL [Concomitant]

REACTIONS (5)
  - Oropharyngeal pain [Not Recovered/Not Resolved]
  - Sensory disturbance [Recovered/Resolved]
  - Increased upper airway secretion [Not Recovered/Not Resolved]
  - Chills [Recovered/Resolved]
  - Feeling abnormal [Recovered/Resolved]
